FAERS Safety Report 9540223 (Version 2)
Quarter: 2013Q3

REPORT INFORMATION
  Report Type: Spontaneous
  Country: US (occurrence: US)
  Receive Date: 20130920
  Receipt Date: 20130920
  Transmission Date: 20140515
  Serious: Yes (Hospitalization)
  Sender: FDA-Public Use
  Company Number: US-NAPPMUNDI-USA-2013-0104741

PATIENT
  Age: 82 Year
  Sex: Female

DRUGS (14)
  1. OXYCODONE HYDROCHLORIDE (SIMILAR TO NDA 22-272) [Suspect]
     Indication: PRODUCT USED FOR UNKNOWN INDICATION
     Dosage: 30 MG, Q12H
     Route: 048
  2. PERCOCET /00867901/ [Suspect]
  3. ASPIRIN [Concomitant]
     Indication: PRODUCT USED FOR UNKNOWN INDICATION
     Dosage: 81 MG, DAILY
  4. CALCIUM CARBONATE W/CHOLECALCIFEROL/SODIUM [Concomitant]
     Indication: PRODUCT USED FOR UNKNOWN INDICATION
     Dosage: 1 TABLET, DAILY
  5. CARVEDILOL [Concomitant]
     Indication: PRODUCT USED FOR UNKNOWN INDICATION
     Dosage: 12.5 MG, BID
  6. VITAMIN D3 [Concomitant]
     Indication: PRODUCT USED FOR UNKNOWN INDICATION
     Dosage: 2000 UNIT, DAILY
  7. LASIX                              /00032601/ [Concomitant]
     Indication: PRODUCT USED FOR UNKNOWN INDICATION
     Dosage: 40 MG, DAILY
  8. HYDRALAZINE [Concomitant]
     Indication: PRODUCT USED FOR UNKNOWN INDICATION
     Dosage: 25 MG, TID
  9. IMDUR [Concomitant]
     Indication: PRODUCT USED FOR UNKNOWN INDICATION
     Dosage: 30 MG, DAILY
  10. LEVOTHYROXINE [Concomitant]
     Indication: PRODUCT USED FOR UNKNOWN INDICATION
     Dosage: 150 MG, DAILY
  11. MULTIVITAMIN                       /00097801/ [Concomitant]
     Indication: PRODUCT USED FOR UNKNOWN INDICATION
     Dosage: UNK, DAILY
  12. OMEPRAZOLE [Concomitant]
     Indication: PRODUCT USED FOR UNKNOWN INDICATION
     Dosage: 20 MG, DAILY
  13. SODIUM BICARBONATE [Concomitant]
     Indication: PRODUCT USED FOR UNKNOWN INDICATION
     Dosage: 650 MG, BID
  14. TRIFLUOPERAZINE [Concomitant]
     Indication: PAIN
     Dosage: 2 MG, BID

REACTIONS (4)
  - Overdose [Unknown]
  - Renal failure acute [Recovering/Resolving]
  - Hyperkalaemia [Recovering/Resolving]
  - Fall [Unknown]
